FAERS Safety Report 22624906 (Version 1)
Quarter: 2023Q2

REPORT INFORMATION
  Report Type: Spontaneous
  Country: US (occurrence: US)
  Receive Date: 20230621
  Receipt Date: 20230621
  Transmission Date: 20230722
  Serious: Yes (Disabling, Other)
  Sender: FDA-Public Use
  Company Number: US-BRISTOL-MYERS SQUIBB COMPANY-2023-084490

PATIENT
  Age: 45 Year
  Sex: Male
  Weight: 124.73 kg

DRUGS (4)
  1. OPDIVO [Suspect]
     Active Substance: NIVOLUMAB
     Indication: Renal cell carcinoma
     Dosage: DOSE : 4-6 DOSES;     FREQ : EVERY 2-4 WEEKS.
     Route: 042
     Dates: start: 201910, end: 2020
  2. YERVOY [Suspect]
     Active Substance: IPILIMUMAB
     Indication: Renal cell carcinoma
     Dosage: DOSE : 4-6 DOSES;     FREQ : EVERY 2-4 WEEKS.
     Route: 042
     Dates: start: 201910, end: 2020
  3. GABAPENTIN [Concomitant]
     Active Substance: GABAPENTIN
     Indication: Product used for unknown indication
  4. XGEVA [Concomitant]
     Active Substance: DENOSUMAB
     Indication: Product used for unknown indication
     Dosage: HELPED WITH BONE TREATMENT

REACTIONS (5)
  - Chronic inflammatory demyelinating polyradiculoneuropathy [Unknown]
  - Pyrexia [Unknown]
  - Thyroid disorder [Unknown]
  - Metastatic renal cell carcinoma [Unknown]
  - Bone disorder [Unknown]
